FAERS Safety Report 4988394-X (Version None)
Quarter: 2006Q2

REPORT INFORMATION
  Report Type: 
  Country: None (occurrence: None)
  Receive Date: 20060502
  Receipt Date: 20060426
  Transmission Date: 20061013
  Serious: Yes (Hospitalization)
  Sender: FDA-Public Use
  Company Number: FR-AVENTIS-200611579FR

PATIENT
  Age: 14 Year
  Sex: Male
  Weight: 79 kg

DRUGS (3)
  1. FLAGYL [Suspect]
     Indication: CROHN'S DISEASE
     Route: 048
     Dates: start: 20050422, end: 20050426
  2. MODULON [Concomitant]
  3. CIFLOX [Concomitant]

REACTIONS (3)
  - BLOOD AMYLASE INCREASED [None]
  - LIPASE INCREASED [None]
  - PANCREATITIS ACUTE [None]
